FAERS Safety Report 13617573 (Version 3)
Quarter: 2019Q2

REPORT INFORMATION
  Report Type: Report from Study
  Country: US (occurrence: US)
  Receive Date: 20170606
  Receipt Date: 20190515
  Transmission Date: 20190711
  Serious: Yes (Other)
  Sender: FDA-Public Use
  Company Number: US-SA-2017SA041025

PATIENT
  Age: 40 Year
  Sex: Male

DRUGS (2)
  1. INSULIN GLARGINE [Suspect]
     Active Substance: INSULIN GLARGINE
     Indication: TYPE 1 DIABETES MELLITUS
     Dosage: 28 IU, QD
     Route: 065
  2. NPH INSULIN [Concomitant]
     Active Substance: INSULIN BEEF
     Route: 065

REACTIONS (5)
  - Diabetes mellitus inadequate control [Recovered/Resolved]
  - Blood glucose fluctuation [Recovered/Resolved]
  - Blood glucose decreased [Recovered/Resolved]
  - Drug ineffective [Unknown]
  - Therapeutic response decreased [Unknown]
